FAERS Safety Report 20749517 (Version 1)
Quarter: 2022Q2

REPORT INFORMATION
  Report Type: Spontaneous
  Country: US (occurrence: None)
  Receive Date: 20220426
  Receipt Date: 20220426
  Transmission Date: 20220721
  Serious: Yes (Other)
  Sender: FDA-Public Use
  Company Number: US-MICRO LABS LIMITED-ML2022-01670

PATIENT
  Age: 31 Year
  Sex: Female

DRUGS (6)
  1. LOSARTAN [Suspect]
     Active Substance: LOSARTAN
     Indication: Congestive cardiomyopathy
  2. BUMETANIDE [Suspect]
     Active Substance: BUMETANIDE
     Indication: Congestive cardiomyopathy
     Route: 042
  3. CARVEDILOL [Suspect]
     Active Substance: CARVEDILOL
     Indication: Congestive cardiomyopathy
  4. SPIRONOLACTONE [Suspect]
     Active Substance: SPIRONOLACTONE
     Indication: Congestive cardiomyopathy
  5. SACUBITRIL\VALSARTAN [Suspect]
     Active Substance: SACUBITRIL\VALSARTAN
     Indication: Congestive cardiomyopathy
  6. DAPAGLIFLOZIN [Suspect]
     Active Substance: DAPAGLIFLOZIN
     Indication: Congestive cardiomyopathy

REACTIONS (1)
  - Drug ineffective [Unknown]
